FAERS Safety Report 14554170 (Version 1)
Quarter: 2018Q1

REPORT INFORMATION
  Report Type: Spontaneous
  Country: US (occurrence: US)
  Receive Date: 20180208
  Receipt Date: 20180208
  Transmission Date: 20180509
  Serious: No
  Sender: FDA-Public Use
  Company Number: None

PATIENT
  Age: 65 Year
  Sex: Male
  Weight: 97 kg

DRUGS (2)
  1. CELECOXIB. [Suspect]
     Active Substance: CELECOXIB
     Route: 048
     Dates: start: 20130906, end: 20150504
  2. PREGABALIN. [Suspect]
     Active Substance: PREGABALIN
     Indication: INTERVERTEBRAL DISC DISORDER
     Route: 048
     Dates: start: 20140922, end: 20150504

REACTIONS (3)
  - Dyspnoea [None]
  - Cardiac failure congestive [None]
  - Oedema [None]

NARRATIVE: CASE EVENT DATE: 20150504
